FAERS Safety Report 9629927 (Version 1)
Quarter: 2013Q4

REPORT INFORMATION
  Report Type: Spontaneous
  Country: US (occurrence: US)
  Receive Date: 20131017
  Receipt Date: 20131017
  Transmission Date: 20140711
  Serious: Yes (Death)
  Sender: FDA-Public Use
  Company Number: US-TEVA-438525USA

PATIENT
  Age: 36 Year
  Sex: Male
  Weight: 100 kg

DRUGS (2)
  1. AMPHETAMINE W/DEXTROAMPHETAMINE [Suspect]
     Route: 065
  2. TRAMADOL [Suspect]
     Indication: OVERDOSE
     Dosage: TWENTY SEVEN 50MG TABLETS
     Route: 048

REACTIONS (3)
  - Completed suicide [Fatal]
  - Overdose [Fatal]
  - Toxicity to various agents [Fatal]
